FAERS Safety Report 17111453 (Version 1)
Quarter: 2019Q4

REPORT INFORMATION
  Report Type: Spontaneous
  Country: US (occurrence: US)
  Receive Date: 20191203
  Receipt Date: 20191203
  Transmission Date: 20200122
  Serious: Yes (Life-Threatening, Hospitalization, Disabling, Other)
  Sender: FDA-Public Use
  Company Number: None

PATIENT
  Age: 49 Year
  Sex: Female
  Weight: 63 kg

DRUGS (1)
  1. LYRICA [Suspect]
     Active Substance: PREGABALIN
     Indication: NERVE INJURY
     Dates: start: 20170811, end: 20170818

REACTIONS (6)
  - Delirium [None]
  - Blister [None]
  - Rash [None]
  - Cognitive disorder [None]
  - Suicide attempt [None]
  - Drug ineffective [None]
